FAERS Safety Report 13010965 (Version 1)
Quarter: 2016Q4

REPORT INFORMATION
  Report Type: Spontaneous
  Country: JP (occurrence: JP)
  Receive Date: 20161208
  Receipt Date: 20161208
  Transmission Date: 20170207
  Serious: Yes (Hospitalization)
  Sender: FDA-Public Use
  Company Number: JP-SA-2016SA221340

PATIENT
  Age: 84 Year
  Sex: Female

DRUGS (2)
  1. SITAGLIPTIN PHOSPHATE [Suspect]
     Active Substance: SITAGLIPTIN PHOSPHATE
     Route: 065
  2. GLIMEPIRIDE. [Suspect]
     Active Substance: GLIMEPIRIDE
     Route: 065

REACTIONS (5)
  - Loss of consciousness [Recovered/Resolved]
  - Coma scale normal [Recovered/Resolved]
  - Pupillary reflex impaired [Recovered/Resolved]
  - Hypoglycaemic encephalopathy [Recovering/Resolving]
  - Nuclear magnetic resonance imaging brain abnormal [Recovering/Resolving]

NARRATIVE: CASE EVENT DATE: 201509
